FAERS Safety Report 10974531 (Version 1)
Quarter: 2015Q2

REPORT INFORMATION
  Report Type: Spontaneous
  Country: FR (occurrence: FR)
  Receive Date: 20150401
  Receipt Date: 20150401
  Transmission Date: 20150821
  Serious: Yes (Other)
  Sender: FDA-Public Use
  Company Number: FR-EISAI MEDICAL RESEARCH-EC-2015-005314

PATIENT
  Age: 67 Year
  Sex: Female

DRUGS (11)
  1. HALAVEN [Suspect]
     Active Substance: ERIBULIN MESYLATE
     Indication: BREAST CANCER METASTATIC
     Route: 041
     Dates: start: 20141224, end: 20141231
  2. DOLIPRANE [Concomitant]
     Active Substance: ACETAMINOPHEN
     Dosage: WHERE NEEDED
     Route: 048
  3. NIVESTIM [Suspect]
     Active Substance: FILGRASTIM
     Indication: PROPHYLAXIS
     Dosage: 30 MUI DAILY
     Route: 041
     Dates: start: 20150101, end: 20150107
  4. LYSANXIA [Concomitant]
     Active Substance: PRAZEPAM
     Dosage: 20 MG OCCASIONALLY
     Route: 048
  5. ARIMIDEX [Concomitant]
     Active Substance: ANASTROZOLE
     Indication: BREAST CANCER
     Dates: start: 201401
  6. LODOZ [Concomitant]
     Active Substance: BISOPROLOL FUMARATE\HYDROCHLOROTHIAZIDE
     Dosage: 5 MG / 6.25 MG
     Route: 048
  7. LEVOCETIRIZINE [Concomitant]
     Active Substance: LEVOCETIRIZINE
     Indication: PRURITUS
     Route: 048
     Dates: start: 20150114
  8. ZOPHREN [Suspect]
     Active Substance: ONDANSETRON
     Indication: PROPHYLAXIS OF NAUSEA AND VOMITING
     Route: 048
     Dates: start: 20141224, end: 20141231
  9. CORTICOIDS [Concomitant]
     Active Substance: UNSPECIFIED INGREDIENT
     Indication: PROPHYLAXIS
     Route: 065
     Dates: start: 20141224, end: 20141231
  10. NEULASTA [Concomitant]
     Active Substance: PEGFILGRASTIM
     Dates: start: 20131010
  11. PREDNISONE. [Concomitant]
     Active Substance: PREDNISONE
     Route: 048
     Dates: start: 20150114

REACTIONS (3)
  - Hepatitis cholestatic [Recovering/Resolving]
  - Pulmonary embolism [Unknown]
  - Rash [Unknown]

NARRATIVE: CASE EVENT DATE: 20150112
